FAERS Safety Report 6248302-0 (Version None)
Quarter: 2009Q2

REPORT INFORMATION
  Report Type: 
  Country: None (occurrence: None)
  Receive Date: 20090629
  Receipt Date: 20090617
  Transmission Date: 20091009
  Serious: Yes (Other)
  Sender: FDA-Public Use
  Company Number: PHHY2009BR23157

PATIENT
  Sex: Female

DRUGS (3)
  1. EXELON [Suspect]
     Indication: DEMENTIA ALZHEIMER'S TYPE
     Dosage: 1.5 MG, QD
     Route: 048
     Dates: start: 20070201, end: 20090201
  2. STUGERON [Concomitant]
     Indication: LABYRINTHITIS
     Dosage: 25 MG, QD
     Route: 048
  3. SULPAN [Concomitant]
     Indication: HALLUCINATION

REACTIONS (6)
  - AKINESIA [None]
  - APATHY [None]
  - ASTHENIA [None]
  - GENERAL PHYSICAL HEALTH DETERIORATION [None]
  - HYPERSOMNIA [None]
  - SOMNOLENCE [None]
